FAERS Safety Report 12669761 (Version 2)
Quarter: 2016Q3

REPORT INFORMATION
  Report Type: Spontaneous
  Country: AU (occurrence: AU)
  Receive Date: 20160819
  Receipt Date: 20160823
  Transmission Date: 20161109
  Serious: Yes (Death)
  Sender: FDA-Public Use
  Company Number: AU-BAXTER-2016BAX042427

PATIENT
  Age: 50 Year
  Sex: Female

DRUGS (1)
  1. DIANEAL [Suspect]
     Active Substance: CALCIUM CHLORIDE\DEXTROSE\MAGNESIUM CHLORIDE\SODIUM CHLORIDE\SODIUM LACTATE
     Indication: PERITONEAL DIALYSIS
     Route: 033

REACTIONS (1)
  - Death [Fatal]

NARRATIVE: CASE EVENT DATE: 20160809
